FAERS Safety Report 4275101-1 (Version None)
Quarter: 2004Q1

REPORT INFORMATION
  Report Type: 
  Country: None (occurrence: None)
  Receive Date: 20040116
  Receipt Date: 20040106
  Transmission Date: 20041129
  Serious: Yes (Hospitalization)
  Sender: FDA-Public Use
  Company Number: 2004000936

PATIENT
  Sex: Female

DRUGS (3)
  1. ZYRTEC [Suspect]
     Indication: TOXIC SKIN ERUPTION
     Dosage: UNKNOWN (UNKNOWN); ORAL
     Route: 048
     Dates: start: 19990101
  2. CLOPIDOGREL BISULFATE [Concomitant]
  3. HEPARIN-FRACTION, SODIUM SALT [Concomitant]

REACTIONS (1)
  - UNEVALUABLE EVENT [None]
